FAERS Safety Report 5555069-8 (Version None)
Quarter: 2007Q4

REPORT INFORMATION
  Report Type: 
  Country: None (occurrence: None)
  Receive Date: 20071213
  Receipt Date: 20071204
  Transmission Date: 20080405
  Serious: Yes (Hospitalization)
  Sender: FDA-Public Use
  Company Number: US-BAYER-US-2007-042992

PATIENT
  Age: 24 Year
  Sex: Female
  Weight: 64 kg

DRUGS (1)
  1. MIRENA [Suspect]
     Indication: CONTRACEPTION
     Route: 015
     Dates: start: 20061130, end: 20070608

REACTIONS (4)
  - PELVIC INFECTION [None]
  - PELVIC PAIN [None]
  - VAGINAL HAEMORRHAGE [None]
  - WEIGHT DECREASED [None]
